FAERS Safety Report 4692302-9 (Version None)
Quarter: 2005Q2

REPORT INFORMATION
  Report Type: 
  Country: None (occurrence: None)
  Receive Date: 20050614
  Receipt Date: 20050601
  Transmission Date: 20051028
  Serious: Yes (Hospitalization)
  Sender: FDA-Public Use
  Company Number: 2005084733

PATIENT
  Age: 29 Year
  Sex: Female

DRUGS (2)
  1. ZELDOX (CAPSULES) (ZIPRASIDONE) [Suspect]
     Indication: SCHIZOPHRENIA, PARANOID TYPE
     Dosage: 120 MG ORAL
     Route: 048
     Dates: start: 20041020
  2. ZYPREXA [Concomitant]

REACTIONS (3)
  - CHILLS [None]
  - DEPRESSION [None]
  - EXTRAPYRAMIDAL DISORDER [None]
